FAERS Safety Report 4583614-8 (Version None)
Quarter: 2005Q1

REPORT INFORMATION
  Report Type: 
  Country: None (occurrence: None)
  Receive Date: 20050211
  Receipt Date: 20050131
  Transmission Date: 20050727
  Serious: Yes (Life-Threatening, Other)
  Sender: FDA-Public Use
  Company Number: 2005-01-0006

PATIENT
  Age: 88 Year
  Sex: Female

DRUGS (1)
  1. DIAZOXIDE [Suspect]
     Indication: HYPERINSULINAEMIA
     Dosage: 100MD QD
     Dates: start: 20031101

REACTIONS (10)
  - BLOOD PRESSURE DECREASED [None]
  - BONE MARROW DEPRESSION [None]
  - C-REACTIVE PROTEIN INCREASED [None]
  - CHILLS [None]
  - CIRCULATORY COLLAPSE [None]
  - HYPOGLYCAEMIA [None]
  - INSULIN C-PEPTIDE INCREASED [None]
  - PANCREATIC NEOPLASM [None]
  - PANCYTOPENIA [None]
  - PYREXIA [None]
